FAERS Safety Report 4355401-7 (Version None)
Quarter: 2004Q2

REPORT INFORMATION
  Report Type: 
  Country: None (occurrence: None)
  Receive Date: 20040505
  Receipt Date: 20040420
  Transmission Date: 20050107
  Serious: Yes (Life-Threatening, Other)
  Sender: FDA-Public Use
  Company Number: DE-SHR-04-020085

PATIENT
  Age: 42 Year
  Sex: Female

DRUGS (2)
  1. MIRENA [Suspect]
     Indication: MENSTRUAL DISORDER
     Dosage: 20 UG/DAY, CONT, INTRA-UTERINE
     Route: 015
     Dates: start: 20020725, end: 20040201
  2. ANTIEPILEPTICS [Concomitant]

REACTIONS (3)
  - ASTROCYTOMA [None]
  - DISEASE RECURRENCE [None]
  - EPILEPSY [None]
